FAERS Safety Report 7893076-0 (Version None)
Quarter: 2011Q4

REPORT INFORMATION
  Report Type: 
  Country: None (occurrence: None)
  Receive Date: 20111104
  Receipt Date: 20111103
  Transmission Date: 20120403
  Serious: Yes (Death, Hospitalization)
  Sender: FDA-Public Use
  Company Number: ES-PFIZER INC-2011268804

PATIENT
  Age: 48 Year
  Sex: Male

DRUGS (6)
  1. LISINOPRIL [Interacting]
     Indication: HYPERTENSION
     Dosage: 20 MG, 1X/DAY
     Route: 048
     Dates: start: 20100301
  2. ATORVASTATIN [Concomitant]
     Indication: DYSLIPIDAEMIA
     Dosage: 40 MG, 1X/DAY
     Route: 048
     Dates: start: 20080701
  3. METHADONE [Concomitant]
     Indication: PROPHYLAXIS
     Dosage: UNK
     Route: 048
     Dates: start: 20101001
  4. VERAPAMIL [Concomitant]
     Indication: HYPERTENSION
     Dosage: 160 MG, 1X/DAY
     Route: 048
     Dates: start: 20091201
  5. ALDACTONE [Suspect]
     Indication: HEPATIC CIRRHOSIS
     Dosage: 100 MG, 1X/DAY
     Route: 048
     Dates: start: 20101217, end: 20101220
  6. TRIZIVIR [Concomitant]
     Indication: PROPHYLAXIS
     Dosage: UNK
     Route: 048
     Dates: start: 20101001

REACTIONS (3)
  - RESPIRATORY TRACT INFECTION [None]
  - DRUG INTERACTION [None]
  - HYPONATRAEMIA [None]
